FAERS Safety Report 22622101 (Version 1)
Quarter: 2023Q2

REPORT INFORMATION
  Report Type: Spontaneous
  Country: NP (occurrence: NP)
  Receive Date: 20230620
  Receipt Date: 20230620
  Transmission Date: 20230722
  Serious: Yes (Death)
  Sender: FDA-Public Use
  Company Number: NP-PFIZER INC-PV202300108227

PATIENT
  Age: 63 Year
  Sex: Male

DRUGS (1)
  1. TEMSIROLIMUS [Suspect]
     Active Substance: TEMSIROLIMUS
     Indication: Renal cell carcinoma
     Dosage: 25 MG, 1X/DAY

REACTIONS (1)
  - Death [Fatal]
